FAERS Safety Report 23440133 (Version 2)
Quarter: 2024Q1

REPORT INFORMATION
  Report Type: Spontaneous
  Country: JP (occurrence: JP)
  Receive Date: 20240124
  Receipt Date: 20240228
  Transmission Date: 20240410
  Serious: Yes (Other)
  Sender: FDA-Public Use
  Company Number: JP-MSD-M2024-01803

PATIENT
  Age: 58 Year
  Sex: Male

DRUGS (1)
  1. KEYTRUDA [Suspect]
     Active Substance: PEMBROLIZUMAB
     Indication: Lung squamous cell carcinoma stage IV
     Dosage: 200 MILLIGRAM, Q3W
     Route: 041

REACTIONS (3)
  - Immune-mediated hepatic disorder [Recovered/Resolved]
  - Immune-mediated adrenal insufficiency [Recovered/Resolved]
  - Pneumocystis jirovecii pneumonia [Recovered/Resolved]
